FAERS Safety Report 16810686 (Version 1)
Quarter: 2019Q3

REPORT INFORMATION
  Report Type: Report from Study
  Country: US (occurrence: US)
  Receive Date: 20190916
  Receipt Date: 20190916
  Transmission Date: 20191005
  Serious: Yes (Hospitalization, Other)
  Sender: FDA-Public Use
  Company Number: US-JNJFOC-20190808670

PATIENT
  Sex: Female

DRUGS (1)
  1. IMBRUVICA [Suspect]
     Active Substance: IBRUTINIB
     Indication: CHRONIC LYMPHOCYTIC LEUKAEMIA
     Dosage: 420 MG, QD
     Route: 048
     Dates: start: 20190426

REACTIONS (7)
  - Sleep apnoea syndrome [Unknown]
  - Atrial fibrillation [Unknown]
  - Contusion [Not Recovered/Not Resolved]
  - Cardiac failure [Unknown]
  - Energy increased [Unknown]
  - Joint swelling [Unknown]
  - Urinary tract infection [Recovered/Resolved]
